FAERS Safety Report 25450783 (Version 2)
Quarter: 2025Q2

REPORT INFORMATION
  Report Type: Report from Study
  Country: AT (occurrence: AT)
  Receive Date: 20250618
  Receipt Date: 20250630
  Transmission Date: 20250716
  Serious: Yes (Other)
  Sender: TEVA
  Company Number: AT-TEVA-VS-3191937

PATIENT
  Age: 42 Year
  Sex: Male

DRUGS (2)
  1. PACLITAXEL [Suspect]
     Active Substance: PACLITAXEL
     Indication: Urethral stenosis
     Route: 066
  2. SODIUM CHLORIDE [Concomitant]
     Active Substance: SODIUM CHLORIDE
     Indication: Sterilisation
     Route: 065

REACTIONS (2)
  - Urethral haemorrhage [Recovered/Resolved]
  - Off label use [Unknown]
